FAERS Safety Report 25733466 (Version 1)
Quarter: 2025Q3

REPORT INFORMATION
  Report Type: Spontaneous
  Country: GB (occurrence: GB)
  Receive Date: 20250828
  Receipt Date: 20250828
  Transmission Date: 20251020
  Serious: Yes (Other)
  Sender: ALEXION PHARMACEUTICALS
  Company Number: GB-ASTRAZENECA-202508GBR019310GB

PATIENT
  Sex: Male

DRUGS (1)
  1. TAGRISSO [Suspect]
     Active Substance: OSIMERTINIB
     Indication: Lung cancer metastatic
     Dosage: 80 MILLIGRAM, QD
     Route: 065

REACTIONS (1)
  - Malignant neoplasm progression [Unknown]
